FAERS Safety Report 9275908 (Version 1)
Quarter: 2013Q2

REPORT INFORMATION
  Report Type: Spontaneous
  Country: US (occurrence: None)
  Receive Date: 20130502
  Receipt Date: 20130502
  Transmission Date: 20140414
  Serious: Yes (Other)
  Sender: FDA-Public Use
  Company Number: None

PATIENT
  Age: 59 Year
  Sex: 0
  Weight: 58.97 kg

DRUGS (1)
  1. WELCHOL [Suspect]
     Indication: DIARRHOEA
     Dosage: 1 TABLET
     Route: 048
     Dates: start: 20130309, end: 20130329

REACTIONS (3)
  - Constipation [None]
  - Abdominal pain upper [None]
  - Diverticulitis [None]
